FAERS Safety Report 25545423 (Version 1)
Quarter: 2025Q3

REPORT INFORMATION
  Report Type: Report from Study
  Country: EU (occurrence: EU)
  Receive Date: 20250711
  Receipt Date: 20250711
  Transmission Date: 20251021
  Serious: Yes (Other)
  Sender: PFIZER
  Company Number: EU-BRISTOL-MYERS SQUIBB COMPANY-2025-079529

PATIENT
  Age: 78 Year
  Sex: Male

DRUGS (12)
  1. CARBOPLATIN [Suspect]
     Active Substance: CARBOPLATIN
  2. NIVOLUMAB [Suspect]
     Active Substance: NIVOLUMAB
     Indication: Non-small cell lung cancer
     Dosage: 360 MG, EVERY 3 WEEKS
     Route: 042
     Dates: start: 20241031
  3. NIVOLUMAB [Suspect]
     Active Substance: NIVOLUMAB
     Dosage: 360 MG, EVERY 3 WEEKS
     Route: 042
     Dates: start: 20241031
  4. NELVUTAMIG [Suspect]
     Active Substance: NELVUTAMIG
     Indication: Non-small cell lung cancer
     Route: 042
     Dates: start: 20241031
  5. NELVUTAMIG [Suspect]
     Active Substance: NELVUTAMIG
     Route: 042
     Dates: start: 20241031
  6. PACLITAXEL [Suspect]
     Active Substance: PACLITAXEL
  7. ASPIRIN [Concomitant]
     Active Substance: ASPIRIN
  8. OMEPRAZOLE [Concomitant]
     Active Substance: OMEPRAZOLE
  9. SILODOSIN [Concomitant]
     Active Substance: SILODOSIN
  10. IBUPROFEN [Concomitant]
     Active Substance: IBUPROFEN
  11. PREDNISONE [Concomitant]
     Active Substance: PREDNISONE
  12. CHOLECALCIFEROL [Concomitant]
     Active Substance: CHOLECALCIFEROL

REACTIONS (2)
  - Hyperthyroidism [Recovered/Resolved]
  - Anaemia [Unknown]

NARRATIVE: CASE EVENT DATE: 20250306
